FAERS Safety Report 6383876-0 (Version None)
Quarter: 2009Q4

REPORT INFORMATION
  Report Type: 
  Country: None (occurrence: None)
  Receive Date: 20091001
  Receipt Date: 20090924
  Transmission Date: 20100525
  Serious: Yes (Death)
  Sender: FDA-Public Use
  Company Number: AR-BAYER-200933726GPV

PATIENT
  Age: 2 Year
  Sex: Male

DRUGS (5)
  1. FLUDARABINE [Suspect]
     Indication: STEM CELL TRANSPLANT
  2. ALDURAZYME [Suspect]
     Dates: start: 20080101, end: 20090916
  3. BUSULFAN [Suspect]
     Indication: STEM CELL TRANSPLANT
  4. CYCLOPHOSPHAMIDE [Suspect]
     Indication: STEM CELL TRANSPLANT
  5. THYMOGLOBULIN [Suspect]
     Indication: STEM CELL TRANSPLANT

REACTIONS (2)
  - CAPILLARY LEAK SYNDROME [None]
  - MULTI-ORGAN FAILURE [None]
